FAERS Safety Report 16976454 (Version 1)
Quarter: 2019Q4

REPORT INFORMATION
  Report Type: Spontaneous
  Country: US (occurrence: US)
  Receive Date: 20191030
  Receipt Date: 20191030
  Transmission Date: 20200122
  Serious: No
  Sender: FDA-Public Use
  Company Number: US-CELGENEUS-USA-20191008471

PATIENT
  Sex: Female

DRUGS (1)
  1. INREBIC [Suspect]
     Active Substance: FEDRATINIB HYDROCHLORIDE
     Indication: POLYCYTHAEMIA VERA
     Dosage: 400 MG
     Route: 048
     Dates: start: 20190828

REACTIONS (4)
  - Diarrhoea [Unknown]
  - Depression [Unknown]
  - Stress [Unknown]
  - Abdominal pain upper [Unknown]
